FAERS Safety Report 14294111 (Version 1)
Quarter: 2017Q4

REPORT INFORMATION
  Report Type: Spontaneous
  Country: FR (occurrence: FR)
  Receive Date: 20171217
  Receipt Date: 20171217
  Transmission Date: 20180321
  Serious: Yes (Hospitalization)
  Sender: FDA-Public Use
  Company Number: FR-MYLANLABS-2017M1078502

PATIENT
  Age: 62 Year
  Sex: Male

DRUGS (10)
  1. RAMIPRIL. [Suspect]
     Active Substance: RAMIPRIL
     Indication: PRODUCT USED FOR UNKNOWN INDICATION
  2. BISOPROLOL MYLAN [Suspect]
     Active Substance: BISOPROLOL
     Indication: PRODUCT USED FOR UNKNOWN INDICATION
     Dosage: 5.75 MG, QD (3.25 MG IN MORNING AND 2.5 MG IN EVENING)
     Route: 048
     Dates: start: 20171019, end: 2017
  3. DIFFU-K [Suspect]
     Active Substance: POTASSIUM CHLORIDE
     Indication: PRODUCT USED FOR UNKNOWN INDICATION
     Dosage: UNK
     Route: 048
     Dates: start: 20171019, end: 2017
  4. TRIATEC [Suspect]
     Active Substance: RAMIPRIL
     Indication: PRODUCT USED FOR UNKNOWN INDICATION
     Dosage: 5 MG (2.5 MG, BID)
     Route: 048
     Dates: start: 20171019, end: 2017
  5. BRILIQUE [Suspect]
     Active Substance: TICAGRELOR
     Indication: PRODUCT USED FOR UNKNOWN INDICATION
     Dosage: 180 MG (90 MG, BID)
     Route: 048
     Dates: start: 20171019, end: 2017
  6. KARDEGIC [Concomitant]
     Active Substance: ASPIRIN DL-LYSINE
     Indication: PRODUCT USED FOR UNKNOWN INDICATION
     Dosage: 75 MG, UNK
  7. INEXIUM                            /01479302/ [Concomitant]
     Active Substance: ESOMEPRAZOLE MAGNESIUM
     Indication: PRODUCT USED FOR UNKNOWN INDICATION
     Dosage: 20 MG, UNK
  8. LACTIBIANE (PROBIOTIC) [Suspect]
     Active Substance: PROBIOTICS NOS
     Indication: PRODUCT USED FOR UNKNOWN INDICATION
  9. TAHOR [Suspect]
     Active Substance: ATORVASTATIN CALCIUM
     Indication: PRODUCT USED FOR UNKNOWN INDICATION
     Dosage: UNK
     Route: 048
     Dates: start: 20171019, end: 2017
  10. SEROPLEX [Suspect]
     Active Substance: ESCITALOPRAM OXALATE
     Indication: PRODUCT USED FOR UNKNOWN INDICATION
     Dosage: 5 MG, QD
     Route: 048
     Dates: start: 20171019, end: 2017

REACTIONS (9)
  - Sinus bradycardia [Recovered/Resolved]
  - Somnolence [Recovered/Resolved]
  - Intentional overdose [Recovered/Resolved]
  - Bundle branch block right [Not Recovered/Not Resolved]
  - Electrocardiogram QRS complex prolonged [Not Recovered/Not Resolved]
  - Bradypnoea [Recovered/Resolved]
  - Haematuria [Recovered/Resolved]
  - Hyperkalaemia [Recovered/Resolved]
  - Intentional overdose [None]

NARRATIVE: CASE EVENT DATE: 201710
